FAERS Safety Report 8950551 (Version 1)
Quarter: 2012Q4

REPORT INFORMATION
  Report Type: 
  Country: US (occurrence: US)
  Receive Date: 20121207
  Receipt Date: 20121207
  Transmission Date: 20130627
  Serious: Yes (Hospitalization)
  Sender: FDA-Public Use
  Company Number: US-BAYER-2012-127313

PATIENT
  Age: 33 Year
  Sex: Female
  Weight: 61 kg

DRUGS (4)
  1. YASMIN [Suspect]
     Indication: ORAL CONTRACEPTIVE
  2. TOPROL [Concomitant]
  3. FLONASE [Concomitant]
  4. ADENOSINE [Concomitant]
     Indication: SVT

REACTIONS (1)
  - Pulmonary embolism [None]
